FAERS Safety Report 18490173 (Version 1)
Quarter: 2020Q4

REPORT INFORMATION
  Report Type: Spontaneous
  Country: US (occurrence: US)
  Receive Date: 20201111
  Receipt Date: 20201111
  Transmission Date: 20210114
  Serious: Yes (Life-Threatening, Other)
  Sender: FDA-Public Use
  Company Number: None

PATIENT
  Age: 24 Year
  Sex: Female
  Weight: 136.08 kg

DRUGS (4)
  1. CBD PRODUCTS [Concomitant]
  2. CBD PRODUCTS [Concomitant]
  3. CBD PRODUCTS [Concomitant]
  4. CBD OIL [Suspect]
     Active Substance: CANNABIDIOL\HERBALS

REACTIONS (3)
  - Emotional distress [None]
  - Abnormal behaviour [None]
  - Stress [None]

NARRATIVE: CASE EVENT DATE: 20200601
